FAERS Safety Report 18373963 (Version 4)
Quarter: 2022Q1

REPORT INFORMATION
  Report Type: Spontaneous
  Country: US (occurrence: US)
  Receive Date: 20201012
  Receipt Date: 20220203
  Transmission Date: 20220423
  Serious: No
  Sender: FDA-Public Use
  Company Number: US-PFIZER INC-2019352318

PATIENT
  Age: 38 Year
  Sex: Female

DRUGS (1)
  1. LYRICA [Suspect]
     Active Substance: PREGABALIN
     Indication: Fibromyalgia
     Dosage: 350 MG, DAILY (100 MG, 3 TIMES A DAY AND 1 OF 50 MG ONCE A DAY)
     Route: 048

REACTIONS (3)
  - Headache [Unknown]
  - Confusional state [Unknown]
  - Weight increased [Unknown]
